FAERS Safety Report 25493669 (Version 1)
Quarter: 2025Q2

REPORT INFORMATION
  Report Type: Spontaneous
  Country: CN (occurrence: CN)
  Receive Date: 20250630
  Receipt Date: 20250630
  Transmission Date: 20250717
  Serious: Yes (Other)
  Sender: RANBAXY
  Company Number: CN-SUN PHARMACEUTICAL INDUSTRIES LTD-2025R1-513809

PATIENT
  Age: 33 Year
  Sex: Female
  Weight: 90 kg

DRUGS (4)
  1. INSULIN NOS [Suspect]
     Active Substance: INSULIN NOS
     Indication: Diabetes mellitus management
     Route: 065
  2. LABETALOL [Suspect]
     Active Substance: LABETALOL
     Indication: Blood pressure decreased
     Dosage: 100 MILLIGRAM, QD DAILY
     Route: 065
  3. HYDROCORTISONE [Suspect]
     Active Substance: HYDROCORTISONE
     Indication: Adrenal adenoma
     Route: 065
  4. POTASSIUM CHLORIDE [Suspect]
     Active Substance: POTASSIUM CHLORIDE
     Indication: Mineral supplementation
     Dosage: 1 GRAM, TID , DAILY
     Route: 065

REACTIONS (3)
  - Premature rupture of membranes [Unknown]
  - Premature delivery [Unknown]
  - Exposure during pregnancy [Unknown]
